FAERS Safety Report 5000989-6 (Version None)
Quarter: 2006Q2

REPORT INFORMATION
  Report Type: 
  Country: None (occurrence: None)
  Receive Date: 20060512
  Receipt Date: 20060505
  Transmission Date: 20061013
  Serious: Yes (Other)
  Sender: FDA-Public Use
  Company Number: US-SANOFI-SYNTHELABO-A03200602834

PATIENT
  Age: 38 Year
  Sex: Male

DRUGS (2)
  1. AMBIEN [Suspect]
     Indication: INSOMNIA
     Dosage: UNK
     Route: 048
     Dates: start: 20060101
  2. PROMETHAZINE [Suspect]
     Indication: NAUSEA
     Dosage: UNK
     Route: 065
     Dates: start: 20060502

REACTIONS (10)
  - ALCOHOL POISONING [None]
  - AMNESIA [None]
  - DISORIENTATION [None]
  - DYSARTHRIA [None]
  - GAIT DISTURBANCE [None]
  - IMPAIRED DRIVING ABILITY [None]
  - LACRIMATION INCREASED [None]
  - OCULAR HYPERAEMIA [None]
  - POISONING [None]
  - ROAD TRAFFIC ACCIDENT [None]
